FAERS Safety Report 10689089 (Version 5)
Quarter: 2015Q3

REPORT INFORMATION
  Report Type: Spontaneous
  Country: JP (occurrence: JP)
  Receive Date: 20150104
  Receipt Date: 20150710
  Transmission Date: 20151125
  Serious: Yes (Other)
  Sender: FDA-Public Use
  Company Number: PHHY2014JP168560

PATIENT
  Age: 54 Year
  Sex: Female
  Weight: 45 kg

DRUGS (6)
  1. AFINITOR [Suspect]
     Active Substance: EVEROLIMUS
     Dosage: 5 MG, QD
     Route: 048
     Dates: start: 20141211
  2. AFINITOR [Suspect]
     Active Substance: EVEROLIMUS
     Indication: BREAST CANCER
     Dosage: 10 MG, QD
     Route: 048
     Dates: start: 20140410, end: 20141009
  3. AROMASIN [Concomitant]
     Active Substance: EXEMESTANE
     Indication: BREAST CANCER
     Dosage: 25 MG, UNK
     Route: 048
     Dates: start: 20140410, end: 20141009
  4. GARGLE [Concomitant]
     Indication: PRODUCT USED FOR UNKNOWN INDICATION
     Route: 065
  5. HACHIAZULE [Concomitant]
     Indication: PROPHYLAXIS
     Dosage: 2 G, BID
     Route: 049
     Dates: start: 20140410, end: 20141009
  6. SODIUM AZULENE SULFONATE L-GLUTAMINE COMB. [Concomitant]
     Indication: PROPHYLAXIS
     Route: 065

REACTIONS (6)
  - Oedema peripheral [Recovered/Resolved]
  - Scleroderma-like reaction [Recovering/Resolving]
  - Malignant neoplasm progression [Recovering/Resolving]
  - Platelet count decreased [Recovered/Resolved]
  - Metastases to liver [Unknown]
  - Therapeutic response decreased [Unknown]

NARRATIVE: CASE EVENT DATE: 20140425
